FAERS Safety Report 17545831 (Version 1)
Quarter: 2020Q1

REPORT INFORMATION
  Report Type: Spontaneous
  Country: US (occurrence: US)
  Receive Date: 20200316
  Receipt Date: 20200316
  Transmission Date: 20200409
  Serious: Yes (Other)
  Sender: FDA-Public Use
  Company Number: US-BAYER-2020-042413

PATIENT
  Sex: Female

DRUGS (2)
  1. SKYLA [Suspect]
     Active Substance: LEVONORGESTREL
     Dosage: 14 ?G PER DAY CONT
     Route: 015
  2. SKYLA [Interacting]
     Active Substance: LEVONORGESTREL
     Dosage: 14 ?G PER DAY CONT
     Route: 015

REACTIONS (3)
  - Uterine perforation [None]
  - Abscess [None]
  - Drug interaction [None]
